FAERS Safety Report 7543324-1 (Version None)
Quarter: 2011Q2

REPORT INFORMATION
  Report Type: 
  Country: None (occurrence: None)
  Receive Date: 20110613
  Receipt Date: 20110608
  Transmission Date: 20111010
  Serious: Yes (Hospitalization, Disabling, Other)
  Sender: FDA-Public Use
  Company Number: US-PFIZER INC-2011061654

PATIENT
  Sex: Female

DRUGS (1)
  1. CHANTIX [Suspect]
     Indication: SMOKING CESSATION THERAPY
     Dosage: STARTING PACK AND CONTINUING PACKS
     Dates: start: 20081125, end: 20090303

REACTIONS (7)
  - INTENTIONAL OVERDOSE [None]
  - MOOD SWINGS [None]
  - ANXIETY [None]
  - PANIC ATTACK [None]
  - DEPRESSION [None]
  - SUICIDE ATTEMPT [None]
  - AMNESIA [None]
